FAERS Safety Report 15133191 (Version 13)
Quarter: 2021Q3

REPORT INFORMATION
  Report Type: Spontaneous
  Country: DE (occurrence: DE)
  Receive Date: 20180712
  Receipt Date: 20210901
  Transmission Date: 20211014
  Serious: Yes (Hospitalization, Other)
  Sender: FDA-Public Use
  Company Number: DE-AUROBINDO-AUR-APL-2018-031337

PATIENT
  Age: 49 Year
  Sex: Male
  Weight: 76 kg

DRUGS (30)
  1. FLUOROURACIL. [Suspect]
     Active Substance: FLUOROURACIL
     Dosage: 4650 MILLIGRAM
     Route: 042
     Dates: start: 20180516, end: 20181106
  2. PLIAZON [Concomitant]
     Indication: PROPHYLAXIS
     Dosage: UNK, AS NECESSARY
     Route: 061
     Dates: start: 20180516
  3. FOLINIC ACID [Suspect]
     Active Substance: LEUCOVORIN
     Dosage: 780 MILLIGRAM
     Route: 065
     Dates: start: 20180516, end: 20190312
  4. OXALIPLATIN. [Suspect]
     Active Substance: OXALIPLATIN
     Indication: COLORECTAL CANCER METASTATIC
     Dosage: 165 MILLIGRAM
     Route: 065
     Dates: start: 20180516, end: 20180814
  5. OXALIPLATIN. [Suspect]
     Active Substance: OXALIPLATIN
     Dosage: 135 MILLIGRAM
     Route: 065
     Dates: start: 20190226, end: 20190312
  6. VITAMIN K [Concomitant]
     Active Substance: PHYTONADIONE
     Indication: PROPHYLAXIS
     Dosage: UNK, AS NECESSARY
     Route: 061
     Dates: start: 20180516
  7. FOLINIC ACID [Suspect]
     Active Substance: LEUCOVORIN
     Dosage: 400 MILLIGRAM
     Route: 065
     Dates: start: 20190326
  8. FOLINIC ACID [Suspect]
     Active Substance: LEUCOVORIN
     Dosage: 790 MILLIGRAM
     Route: 065
     Dates: start: 20190226, end: 20190312
  9. OXALIPLATIN. [Suspect]
     Active Substance: OXALIPLATIN
     Dosage: 85 MILLIGRAM
     Route: 065
     Dates: start: 20190326
  10. FLUOROURACIL. [Suspect]
     Active Substance: FLUOROURACIL
     Dosage: 4750 MILLIGRAM
     Route: 042
     Dates: start: 20190226, end: 20190312
  11. VECTIBIX [Suspect]
     Active Substance: PANITUMUMAB
     Dosage: 6 MILLIGRAM
     Route: 042
     Dates: start: 20190326
  12. FLUOROURACIL. [Suspect]
     Active Substance: FLUOROURACIL
     Dosage: 400 MILLIGRAM
     Route: 040
     Dates: start: 20190326
  13. FLUOROURACIL. [Suspect]
     Active Substance: FLUOROURACIL
     Dosage: 2400 MILLIGRAM
     Route: 042
     Dates: start: 20190326
  14. VECTIBIX [Suspect]
     Active Substance: PANITUMUMAB
     Indication: COLORECTAL CANCER METASTATIC
     Dosage: 460 MILLIGRAM
     Route: 042
     Dates: start: 20180516
  15. FERROSANOL [Concomitant]
     Active Substance: FERROUS GLUCONATE
     Indication: ANAEMIA
     Dosage: 80 MILLIGRAM, 3 TIMES A DAY
     Route: 048
     Dates: start: 20180514
  16. MACROGOL [Concomitant]
     Active Substance: POLYETHYLENE GLYCOLS
     Indication: PROPHYLAXIS
     Dosage: 20 MILLILITER, 3 TIMES A DAY
     Route: 048
     Dates: start: 20180516
  17. FOLINIC ACID [Suspect]
     Active Substance: LEUCOVORIN
     Indication: COLORECTAL CANCER METASTATIC
     Dosage: 780 MILLIGRAM
     Route: 065
     Dates: start: 20180516, end: 20181106
  18. VECTIBIX [Suspect]
     Active Substance: PANITUMUMAB
     Dosage: 480 MILLIGRAM
     Route: 042
     Dates: start: 20190903
  19. MONO EMBOLEX [Concomitant]
     Active Substance: CERTOPARIN SODIUM
     Dosage: 3000 INTERNATIONAL UNIT, ONCE A DAY
     Route: 058
     Dates: start: 20180412
  20. MACROGOL [Concomitant]
     Active Substance: POLYETHYLENE GLYCOLS
     Dosage: 20 MILLILITER, TWO TIMES A DAY
     Route: 048
     Dates: start: 20180516
  21. FOLINIC ACID [Suspect]
     Active Substance: LEUCOVORIN
     Dosage: 790 MILLIGRAM
     Route: 065
     Dates: start: 20190723
  22. FLUOROURACIL. [Suspect]
     Active Substance: FLUOROURACIL
     Indication: COLORECTAL CANCER METASTATIC
     Dosage: 800 MILLIGRAM
     Route: 040
     Dates: start: 20180516, end: 20190312
  23. FLUOROURACIL. [Suspect]
     Active Substance: FLUOROURACIL
     Dosage: 800 MILLIGRAM
     Route: 040
     Dates: start: 20190806
  24. GLANDOMED [Concomitant]
     Indication: PROPHYLAXIS
     Dosage: 40 MILLILITER, ONCE A DAY, 20 ML, BID
     Route: 048
     Dates: start: 20180516
  25. OXALIPLATIN. [Suspect]
     Active Substance: OXALIPLATIN
     Dosage: 135 MILLIGRAM
     Route: 065
     Dates: start: 20190723
  26. FLUOROURACIL. [Suspect]
     Active Substance: FLUOROURACIL
     Dosage: 800 MILLIGRAM
     Route: 040
     Dates: start: 20190723
  27. VECTIBIX [Suspect]
     Active Substance: PANITUMUMAB
     Dosage: 480 MILLIGRAM
     Route: 042
     Dates: start: 20190226
  28. FERROSANOL [Concomitant]
     Active Substance: FERROUS GLUCONATE
     Dosage: 100 MILLIGRAM, ONCE A DAY
     Route: 048
     Dates: start: 20180514
  29. DOXY M [Concomitant]
     Indication: PROPHYLAXIS
     Dosage: 100 MILLIGRAM, ONCE A DAY
     Route: 048
     Dates: start: 20180516
  30. MONO EMBOLEX [Concomitant]
     Active Substance: CERTOPARIN SODIUM
     Indication: PROPHYLAXIS
     Dosage: 3000 INTERNATIONAL UNIT, ONCE A DAY
     Route: 058
     Dates: start: 20180516

REACTIONS (10)
  - Constipation [Recovered/Resolved]
  - Infection [Recovered/Resolved]
  - Hypocalcaemia [Recovered/Resolved]
  - Mucosal inflammation [Recovered/Resolved]
  - Stomatitis [Recovered/Resolved]
  - Lymphocyte count decreased [Recovered/Resolved]
  - Hypertension [Recovered/Resolved]
  - Epistaxis [Recovered/Resolved]
  - Dermatitis acneiform [Recovered/Resolved]
  - Fatigue [Not Recovered/Not Resolved]

NARRATIVE: CASE EVENT DATE: 20180517
